FAERS Safety Report 7792041-1 (Version None)
Quarter: 2011Q3

REPORT INFORMATION
  Report Type: 
  Country: None (occurrence: None)
  Receive Date: 20110930
  Receipt Date: 20110930
  Transmission Date: 20111222
  Serious: Yes (Other)
  Sender: FDA-Public Use
  Company Number: None

PATIENT
  Age: 78 Year
  Sex: Female
  Weight: 68.0396 kg

DRUGS (1)
  1. PHENELZINE SULFATE [Suspect]
     Dosage: 2 TABLETS 2 X DAY
     Dates: start: 20110611, end: 20110911

REACTIONS (7)
  - PANIC ATTACK [None]
  - PRODUCT SUBSTITUTION ISSUE [None]
  - INSOMNIA [None]
  - HALLUCINATION [None]
  - IRRITABILITY [None]
  - DEPRESSION [None]
  - CONFUSIONAL STATE [None]
